FAERS Safety Report 7521540-2 (Version None)
Quarter: 2011Q2

REPORT INFORMATION
  Report Type: 
  Country: None (occurrence: None)
  Receive Date: 20110603
  Receipt Date: 20110525
  Transmission Date: 20111010
  Serious: Yes (Other)
  Sender: FDA-Public Use
  Company Number: US-BAYER-201037263NA

PATIENT
  Age: 63 Year
  Sex: Female

DRUGS (1)
  1. BETASERON [Suspect]
     Indication: MULTIPLE SCLEROSIS
     Dosage: 8 MIU, QOD
     Route: 058
     Dates: start: 20100514

REACTIONS (11)
  - INJECTION SITE HAEMATOMA [None]
  - INJECTION SITE PAIN [None]
  - OEDEMA PERIPHERAL [None]
  - DYSPNOEA [None]
  - MYALGIA [None]
  - COUGH [None]
  - DIARRHOEA [None]
  - ARTHRALGIA [None]
  - INJECTION SITE RASH [None]
  - INJECTION SITE SWELLING [None]
  - LIGAMENT RUPTURE [None]
